FAERS Safety Report 15864181 (Version 1)
Quarter: 2019Q1

REPORT INFORMATION
  Report Type: Spontaneous
  Country: FR (occurrence: FR)
  Receive Date: 20190124
  Receipt Date: 20190124
  Transmission Date: 20190417
  Serious: Yes (Other)
  Sender: FDA-Public Use
  Company Number: FR-PFIZER INC-2019026856

PATIENT
  Age: 42 Year
  Sex: Male

DRUGS (3)
  1. MERONEM [Suspect]
     Active Substance: MEROPENEM
     Indication: LUNG INFECTION
     Dosage: 2 G, EVERY 8 HOURS
     Route: 042
     Dates: start: 20180305, end: 20180312
  2. NEBCINE [Suspect]
     Active Substance: TOBRAMYCIN
     Indication: LUNG INFECTION
     Dosage: 600 UG, DAILY
     Route: 042
     Dates: start: 20180306, end: 20180310
  3. TAMIFLU [Suspect]
     Active Substance: OSELTAMIVIR PHOSPHATE
     Indication: LUNG INFECTION
     Dosage: 150 MG, 1X/DAY
     Route: 048
     Dates: start: 20180305, end: 20180310

REACTIONS (1)
  - Hepatitis [Recovering/Resolving]

NARRATIVE: CASE EVENT DATE: 20180312
